FAERS Safety Report 8572596-X (Version None)
Quarter: 2012Q2

REPORT INFORMATION
  Report Type: 
  Country: None (occurrence: None)
  Receive Date: 20120423
  Receipt Date: 20100114
  Transmission Date: 20120825
  Serious: Yes (Hospitalization)
  Sender: FDA-Public Use
  Company Number: PHEH2009US10747

PATIENT
  Age: 27 Year
  Sex: Female
  Weight: 82.5 kg

DRUGS (3)
  1. EXJADE [Suspect]
     Indication: SICKLE CELL ANAEMIA
     Dosage: 1000 , DAILY, ORAL ; 500 MG, BID, ORAL
     Route: 048
     Dates: start: 20061001
  2. EXJADE [Suspect]
     Indication: IRON OVERLOAD
     Dosage: 1000 , DAILY, ORAL ; 500 MG, BID, ORAL
     Route: 048
     Dates: start: 20061001
  3. MORPHINE [Concomitant]

REACTIONS (5)
  - SICKLE CELL ANAEMIA WITH CRISIS [None]
  - ASPARTATE AMINOTRANSFERASE INCREASED [None]
  - HEPATIC ENZYME INCREASED [None]
  - BLOOD BILIRUBIN INCREASED [None]
  - ALANINE AMINOTRANSFERASE INCREASED [None]
